FAERS Safety Report 9890866 (Version 1)
Quarter: 2014Q1

REPORT INFORMATION
  Report Type: Spontaneous
  Country: BR (occurrence: BR)
  Receive Date: 20140212
  Receipt Date: 20140212
  Transmission Date: 20141002
  Serious: Yes (Death, Other)
  Sender: FDA-Public Use
  Company Number: BR-009507513-1402BRA004371

PATIENT
  Age: 14 Year
  Sex: Female

DRUGS (4)
  1. TEMOZOLOMIDE [Suspect]
     Indication: NEOPLASM
  2. CISPLATIN [Concomitant]
     Indication: NEOPLASM
  3. VEPESID [Concomitant]
     Indication: NEOPLASM
  4. VINORELBINE TARTRATE [Concomitant]
     Indication: NEOPLASM

REACTIONS (8)
  - Death [Fatal]
  - Metastases to liver [Unknown]
  - Surgery [Unknown]
  - Drug ineffective [Unknown]
  - Monoparesis [Unknown]
  - Pulmonary mass [Unknown]
  - Hepatic neoplasm [Unknown]
  - Pleural effusion [Unknown]
